FAERS Safety Report 7440172-8 (Version None)
Quarter: 2011Q2

REPORT INFORMATION
  Report Type: 
  Country: None (occurrence: None)
  Receive Date: 20110427
  Receipt Date: 20110425
  Transmission Date: 20111010
  Serious: Yes (Life-Threatening, Hospitalization)
  Sender: FDA-Public Use
  Company Number: ES-PFIZER INC-2011088352

PATIENT
  Age: 60 Year
  Sex: Male

DRUGS (6)
  1. NORVASC [Suspect]
     Indication: HYPERTENSION
     Dosage: 5 MG, 1X/DAY
     Route: 048
     Dates: start: 20061101
  2. ASPIRIN [Concomitant]
  3. SIMVASTATIN [Concomitant]
  4. NITROGLICERINA [Concomitant]
  5. OMEPRAZOLE [Concomitant]
  6. UNI MASDIL [Interacting]
     Indication: ISCHAEMIC CARDIOMYOPATHY
     Dosage: 200 MG, 1X/DAY
     Route: 048
     Dates: start: 20061101, end: 20080819

REACTIONS (3)
  - NODAL RHYTHM [None]
  - DRUG INTERACTION [None]
  - SYNCOPE [None]
